FAERS Safety Report 8547733-3 (Version None)
Quarter: 2012Q3

REPORT INFORMATION
  Report Type: 
  Country: None (occurrence: None)
  Receive Date: 20120727
  Receipt Date: 20120503
  Transmission Date: 20120928
  Serious: No
  Sender: FDA-Public Use
  Company Number: US-ASTRAZENECA-2012SE28894

PATIENT
  Sex: Male
  Weight: 93 kg

DRUGS (5)
  1. SEROQUEL [Suspect]
     Route: 048
     Dates: start: 20120401
  2. SEROQUEL [Suspect]
     Route: 048
     Dates: start: 20120401
  3. SEROQUEL [Suspect]
     Indication: MAJOR DEPRESSION
     Route: 048
     Dates: start: 20120101, end: 20120401
  4. SEROQUEL [Suspect]
     Indication: SLEEP DISORDER
     Route: 048
     Dates: start: 20120101, end: 20120401
  5. TRAZODONE HCL [Concomitant]

REACTIONS (6)
  - SOMNOLENCE [None]
  - INTENTIONAL DRUG MISUSE [None]
  - COORDINATION ABNORMAL [None]
  - BALANCE DISORDER [None]
  - DISTURBANCE IN ATTENTION [None]
  - ORTHOSTATIC HYPERTENSION [None]
